FAERS Safety Report 8561050-7 (Version None)
Quarter: 2012Q3

REPORT INFORMATION
  Report Type: 
  Country: None (occurrence: None)
  Receive Date: 20120802
  Receipt Date: 20111031
  Transmission Date: 20120928
  Serious: No
  Sender: FDA-Public Use
  Company Number: US-BRISTOL-MYERS SQUIBB COMPANY-16206138

PATIENT
  Age: 46 Year
  Sex: Male
  Weight: 95 kg

DRUGS (12)
  1. CLONAZEPAM [Concomitant]
  2. COMBIVIR [Concomitant]
  3. LEXAPRO [Concomitant]
  4. CRESTOR [Concomitant]
  5. NORVIR [Suspect]
     Indication: HIV INFECTION
  6. METOPROLOL TARTRATE [Concomitant]
  7. GEMFIBROZIL [Concomitant]
  8. DEPAKOTE [Concomitant]
  9. SEROQUEL [Concomitant]
  10. AMBIEN [Concomitant]
  11. REYATAZ [Suspect]
     Indication: HIV INFECTION
     Route: 048
     Dates: start: 20111024
  12. LOVAZA [Concomitant]

REACTIONS (1)
  - VOMITING [None]
